FAERS Safety Report 17005984 (Version 3)
Quarter: 2021Q2

REPORT INFORMATION
  Report Type: Spontaneous
  Country: US (occurrence: US)
  Receive Date: 20191107
  Receipt Date: 20210518
  Transmission Date: 20210716
  Serious: No
  Sender: FDA-Public Use
  Company Number: US-SA-2019SA306233

PATIENT
  Age: 35 Year
  Sex: Female

DRUGS (1)
  1. DUPIXENT [Suspect]
     Active Substance: DUPILUMAB
     Dosage: 300 MG
     Route: 058
     Dates: start: 201909

REACTIONS (7)
  - Skin discolouration [Unknown]
  - Skin irritation [Unknown]
  - Pruritus [Unknown]
  - Injection site pain [Unknown]
  - Eye pruritus [Unknown]
  - Superficial injury of eye [Unknown]
  - Scleral discolouration [Unknown]

NARRATIVE: CASE EVENT DATE: 2019
